FAERS Safety Report 7513093-X (Version None)
Quarter: 2011Q2

REPORT INFORMATION
  Report Type: 
  Country: None (occurrence: None)
  Receive Date: 20110531
  Receipt Date: 20110523
  Transmission Date: 20111010
  Serious: No
  Sender: FDA-Public Use
  Company Number: US-PFIZER INC-2011098415

PATIENT
  Sex: Female
  Weight: 66 kg

DRUGS (2)
  1. XALATAN [Suspect]
     Indication: GLAUCOMA
     Dosage: ONE DROP IN EACH EYE, ONCE A DAY
     Route: 047
     Dates: end: 20110401
  2. LATANOPROST [Suspect]
     Indication: GLAUCOMA
     Dosage: ONE DRUOP EACH EYE, DAILY
     Route: 047
     Dates: start: 20110401

REACTIONS (2)
  - DRY EYE [None]
  - VISION BLURRED [None]
